FAERS Safety Report 7913868-9 (Version None)
Quarter: 2011Q4

REPORT INFORMATION
  Report Type: 
  Country: None (occurrence: None)
  Receive Date: 20111115
  Receipt Date: 20111111
  Transmission Date: 20120403
  Serious: Yes (Hospitalization, Other)
  Sender: FDA-Public Use
  Company Number: BR-PFIZER INC-2011270384

PATIENT
  Age: 54 Year
  Sex: Female

DRUGS (8)
  1. AMLODIPINE BESYLATE [Suspect]
     Indication: HYPERTENSION
     Dosage: 5 MG, UNK
     Route: 048
  2. ASPIRIN [Concomitant]
     Route: 048
  3. DIOVAN [Concomitant]
     Route: 048
  4. ATENOLOL AND CHLORTHALIDONE [Suspect]
     Indication: HYPERTENSION
     Dosage: 50/12.5 MG, UNK
     Route: 048
  5. ATENOLOL [Suspect]
     Dosage: 25 MG, DAILY
     Route: 048
  6. ROSUVASTATIN [Suspect]
     Dosage: 10 MG, UNK
     Route: 048
  7. OLMESARTAN MEDOXOMIL [Suspect]
     Indication: HYPERTENSION
     Dosage: 20 MG, UNK
     Route: 048
  8. CLOPIDOGREL [Concomitant]
     Route: 048

REACTIONS (7)
  - BLOOD PRESSURE INADEQUATELY CONTROLLED [None]
  - HYPERTENSION [None]
  - METABOLIC SYNDROME [None]
  - CHEST PAIN [None]
  - CORONARY ARTERY DISEASE [None]
  - ELECTROCARDIOGRAM ST SEGMENT ELEVATION [None]
  - DYSLIPIDAEMIA [None]
